FAERS Safety Report 9546451 (Version 1)
Quarter: 2013Q3

REPORT INFORMATION
  Report Type: Spontaneous
  Country: FR (occurrence: FR)
  Receive Date: 20130923
  Receipt Date: 20130923
  Transmission Date: 20140515
  Serious: Yes (Other)
  Sender: FDA-Public Use
  Company Number: FR-MYLANLABS-2013S1020607

PATIENT
  Age: 58 Year
  Sex: Male

DRUGS (3)
  1. MITOTANE [Suspect]
     Indication: CUSHING^S SYNDROME
     Route: 065
  2. KETOCONAZOLE [Suspect]
     Indication: CUSHING^S SYNDROME
     Route: 065
  3. METYRAPONE [Concomitant]
     Indication: CUSHING^S SYNDROME
     Route: 065

REACTIONS (1)
  - Neutropenia [Unknown]
